FAERS Safety Report 10434233 (Version 2)
Quarter: 2014Q3

REPORT INFORMATION
  Report Type: Other
  Country: PL (occurrence: PL)
  Receive Date: 20140905
  Receipt Date: 20140905
  Transmission Date: 20150326
  Serious: Yes (Hospitalization)
  Sender: FDA-Public Use
  Company Number: PL-ENDO PHARMACEUTICALS INC-AMLO20140017

PATIENT
  Age: 17 Year
  Sex: Female
  Weight: 55 kg

DRUGS (3)
  1. AMLODIPINE [Suspect]
     Active Substance: AMLODIPINE BESYLATE
     Indication: SUICIDE ATTEMPT
     Route: 048
  2. BISOPROLOL [Suspect]
     Active Substance: BISOPROLOL
     Indication: SUICIDE ATTEMPT
     Route: 048
  3. CAPTOPRIL TABLETS (CAPTOPRIL) [Suspect]
     Active Substance: CAPTOPRIL
     Indication: SUICIDE ATTEMPT
     Route: 048

REACTIONS (27)
  - Hypothermia [None]
  - Peripheral coldness [None]
  - Anuria [None]
  - Hypopnoea [None]
  - Respiratory failure [None]
  - Heart rate decreased [None]
  - Ejection fraction decreased [None]
  - Electrolyte imbalance [None]
  - General physical health deterioration [None]
  - Cardiac failure acute [Recovered/Resolved]
  - Pulmonary oedema [None]
  - Intentional overdose [None]
  - Abdominal pain [None]
  - Asthenia [None]
  - Circulatory collapse [None]
  - Suicide attempt [None]
  - Electrocardiogram ST segment elevation [None]
  - Continuous haemodiafiltration [None]
  - Hyperglycaemia [None]
  - Toxicity to various agents [None]
  - Multi-organ failure [Recovered/Resolved]
  - Dizziness [None]
  - Blood pressure decreased [None]
  - Tachypnoea [None]
  - Cyanosis [None]
  - Metabolic acidosis [None]
  - Cardiomegaly [None]

NARRATIVE: CASE EVENT DATE: 2013
